FAERS Safety Report 16375953 (Version 1)
Quarter: 2019Q2

REPORT INFORMATION
  Report Type: Report from Study
  Country: CA (occurrence: CA)
  Receive Date: 20190531
  Receipt Date: 20190531
  Transmission Date: 20190711
  Serious: Yes (Other)
  Sender: FDA-Public Use
  Company Number: CA-TEVA-2019-CA-1054777

PATIENT
  Age: 44 Year
  Sex: Female

DRUGS (4)
  1. SANDOSTATIN [Suspect]
     Active Substance: OCTREOTIDE ACETATE
     Route: 030
  2. SANDOSTATIN [Suspect]
     Active Substance: OCTREOTIDE ACETATE
     Indication: CARCINOID TUMOUR OF THE APPENDIX
     Route: 058
  3. SANDOSTATIN [Suspect]
     Active Substance: OCTREOTIDE ACETATE
     Route: 030
  4. OCTREOTIDE ACETATE. [Suspect]
     Active Substance: OCTREOTIDE ACETATE
     Indication: CARCINOID TUMOUR OF THE APPENDIX
     Route: 058

REACTIONS (8)
  - Insomnia [Unknown]
  - Fatigue [Unknown]
  - Blood pressure increased [Unknown]
  - Injection site pain [Unknown]
  - Stress [Unknown]
  - Injection site induration [Unknown]
  - Injection site mass [Unknown]
  - Injection site warmth [Unknown]
